FAERS Safety Report 25122206 (Version 3)
Quarter: 2025Q3

REPORT INFORMATION
  Report Type: Spontaneous
  Country: TR (occurrence: TR)
  Receive Date: 20250326
  Receipt Date: 20250803
  Transmission Date: 20251020
  Serious: Yes (Hospitalization, Other)
  Sender: ALEXION PHARMACEUTICALS
  Company Number: TR-ASTRAZENECA-202503TUR019687TR

PATIENT
  Age: 9 Year
  Sex: Female

DRUGS (1)
  1. SOLIRIS [Suspect]
     Active Substance: ECULIZUMAB
     Indication: Atypical haemolytic uraemic syndrome
     Route: 065

REACTIONS (2)
  - Meningococcal bacteraemia [Unknown]
  - White blood cell count decreased [Unknown]
